FAERS Safety Report 21734311 (Version 1)
Quarter: 2022Q4

REPORT INFORMATION
  Report Type: Spontaneous
  Country: CN (occurrence: CN)
  Receive Date: 20221215
  Receipt Date: 20221215
  Transmission Date: 20230112
  Serious: Yes (Other)
  Sender: FDA-Public Use
  Company Number: CN-PFIZER INC-202201333004

PATIENT
  Age: 69 Year
  Sex: Female

DRUGS (2)
  1. LORBRENA [Suspect]
     Active Substance: LORLATINIB
     Dosage: 100 MG, 1X/DAY
     Route: 048
     Dates: start: 20221122
  2. CATEQUENTINIB [Suspect]
     Active Substance: CATEQUENTINIB
     Dosage: UNK
     Route: 048

REACTIONS (3)
  - Pericardial effusion [Unknown]
  - Hypertension [Unknown]
  - Therapeutic response unexpected [Unknown]

NARRATIVE: CASE EVENT DATE: 20221101
